FAERS Safety Report 17686752 (Version 1)
Quarter: 2020Q2

REPORT INFORMATION
  Report Type: Report from Study
  Country: CA (occurrence: CA)
  Receive Date: 20200421
  Receipt Date: 20200421
  Transmission Date: 20200714
  Serious: Yes (Hospitalization)
  Sender: FDA-Public Use
  Company Number: CA-JNJFOC-20200331707

PATIENT
  Age: 58 Year
  Sex: Male
  Weight: 104 kg

DRUGS (1)
  1. REMICADE [Suspect]
     Active Substance: INFLIXIMAB
     Indication: CROHN^S DISEASE
     Dosage: DOSE 10 MG/KG
     Route: 042
     Dates: start: 20191211

REACTIONS (8)
  - Colectomy [Unknown]
  - Off label use [Unknown]
  - Product use issue [Unknown]
  - Ileostomy [Unknown]
  - General physical health deterioration [Unknown]
  - Abdominal pain [Unknown]
  - Frequent bowel movements [Unknown]
  - Feeding disorder [Unknown]

NARRATIVE: CASE EVENT DATE: 20191211
